FAERS Safety Report 7419416-4 (Version None)
Quarter: 2011Q2

REPORT INFORMATION
  Report Type: 
  Country: None (occurrence: None)
  Receive Date: 20110417
  Receipt Date: 20110405
  Transmission Date: 20111010
  Serious: Yes (Hospitalization, Other)
  Sender: FDA-Public Use
  Company Number: FR-BRISTOL-MYERS SQUIBB COMPANY-15659667

PATIENT
  Age: 73 Year
  Sex: Male

DRUGS (2)
  1. ISOPTIN [Interacting]
     Indication: HYPERTENSION
     Dosage: CAPSULE
     Route: 048
     Dates: end: 20100301
  2. CORGARD [Suspect]
     Indication: ANGINA PECTORIS
     Route: 048
     Dates: start: 20100225, end: 20100301

REACTIONS (9)
  - DYSPNOEA [None]
  - BLOOD PRESSURE DECREASED [None]
  - VERTIGO [None]
  - BRADYCARDIA [None]
  - ATRIOVENTRICULAR BLOCK COMPLETE [None]
  - ACIDOSIS [None]
  - DRUG INTERACTION [None]
  - HYPERHIDROSIS [None]
  - PALLOR [None]
